FAERS Safety Report 8244779-X (Version None)
Quarter: 2012Q1

REPORT INFORMATION
  Report Type: 
  Country: None (occurrence: None)
  Receive Date: 20120329
  Receipt Date: 20110401
  Transmission Date: 20120608
  Serious: No
  Sender: FDA-Public Use
  Company Number: US-MYLANLABS-2011S1007034

PATIENT
  Age: 77 Year
  Sex: Female

DRUGS (7)
  1. FENTANYL-100 [Suspect]
     Dosage: CHANGED Q72H
     Route: 062
     Dates: start: 20110301
  2. FENTANYL-100 [Suspect]
     Indication: ABDOMINAL NEOPLASM
     Dosage: CHANGED Q72H
     Route: 062
     Dates: start: 20110301, end: 20110301
  3. MORPHINE SULFATE [Concomitant]
     Route: 048
     Dates: start: 20110301
  4. STOOL SOFTENER [Concomitant]
  5. FENTANYL-100 [Suspect]
     Indication: OVARIAN CANCER
     Dosage: CHANGED Q72H
     Route: 062
     Dates: start: 20110301, end: 20110301
  6. HALDOL [Concomitant]
     Indication: NAUSEA
  7. FENTANYL-100 [Suspect]
     Dosage: CHANGED Q72H
     Route: 062
     Dates: start: 20110301

REACTIONS (5)
  - DYSGEUSIA [None]
  - NAUSEA [None]
  - LETHARGY [None]
  - LISTLESS [None]
  - PAROSMIA [None]
